FAERS Safety Report 4778683-6 (Version None)
Quarter: 2005Q3

REPORT INFORMATION
  Report Type: 
  Country: None (occurrence: None)
  Receive Date: 20050922
  Receipt Date: 20050907
  Transmission Date: 20060218
  Serious: Yes (Other)
  Sender: FDA-Public Use
  Company Number: WAES 0508USA04949

PATIENT
  Age: 68 Year
  Sex: Female

DRUGS (5)
  1. COZAAR [Suspect]
     Indication: HYPERTENSION
     Dosage: 50 MG/DAILY PO
     Route: 048
     Dates: start: 20010625, end: 20040411
  2. ADALAT [Concomitant]
  3. EPADEL [Concomitant]
  4. HALCION [Concomitant]
  5. VOLTAREN [Concomitant]

REACTIONS (1)
  - BRAIN NEOPLASM [None]
